FAERS Safety Report 4416485-0 (Version None)
Quarter: 2004Q3

REPORT INFORMATION
  Report Type: 
  Country: None (occurrence: None)
  Receive Date: 20040730
  Receipt Date: 20040726
  Transmission Date: 20050211
  Serious: Yes (Hospitalization)
  Sender: FDA-Public Use
  Company Number: STA-AE-04-MTX-329

PATIENT
  Age: 65 Year
  Sex: Female

DRUGS (11)
  1. METHOTREXATE [Suspect]
     Indication: RHEUMATOID ARTHRITIS
     Dosage: 15 MG 1X PER 1 WK, ORAL
     Route: 048
     Dates: start: 19940101, end: 20040101
  2. ENBREL [Suspect]
     Indication: RHEUMATOID ARTHRITIS
     Dosage: 25 MG 2X PER 1 WK, SC
     Route: 058
     Dates: start: 20021001, end: 20030101
  3. ALBUTEROL [Concomitant]
  4. PREMARIN [Concomitant]
  5. ASPIRIN [Concomitant]
  6. LASIX [Concomitant]
  7. PREDNISONE [Concomitant]
  8. KLOR-CON [Concomitant]
  9. METOPROLOL (METOPROLOL) [Concomitant]
  10. TRAMADOL HCL [Concomitant]
  11. INSULIN [Concomitant]

REACTIONS (3)
  - ACUTE MYOCARDIAL INFARCTION [None]
  - CORONARY ARTERY STENOSIS [None]
  - TRIPLE VESSEL BYPASS GRAFT [None]
